FAERS Safety Report 6975964 (Version 38)
Quarter: 2014Q1

REPORT INFORMATION
  Report Type: Spontaneous
  Country: US (occurrence: US)
  Receive Date: 20090423
  Receipt Date: 20140114
  Transmission Date: 20141002
  Serious: Yes (Hospitalization, Other)
  Sender: FDA-Public Use
  Company Number: PHEH2009US03889

PATIENT
  Age: 43 Year
  Sex: Male
  Weight: 75.3 kg

DRUGS (67)
  1. AREDIA [Suspect]
     Route: 042
  2. ZOMETA [Suspect]
     Route: 042
  3. CADUET [Concomitant]
  4. AVALIDE [Concomitant]
  5. COREG [Concomitant]
  6. CYMBALTA [Concomitant]
  7. LORAZEPAM [Concomitant]
  8. BENAZEPRIL HYDROCHLORIDE [Concomitant]
  9. NALOXONE [Concomitant]
  10. ENTOCORT [Concomitant]
  11. MORPHINE SULFATE [Concomitant]
  12. VALIUM [Concomitant]
  13. PREDNISONE [Concomitant]
  14. PROTONIX ^PHARMACIA^ [Concomitant]
  15. VALTREX [Concomitant]
  16. NOVOLOG [Concomitant]
  17. LANTUS [Concomitant]
  18. MAGNESIUM [Concomitant]
  19. REGLAN                                  /USA/ [Concomitant]
  20. TEMAZEPAM [Concomitant]
  21. ANTIVERT ^PFIZER^ [Concomitant]
  22. BACTRIM [Concomitant]
  23. SULFAMETHOXAZOLE W/TRIMETHOPRIM [Concomitant]
  24. ENTOCORT EC [Concomitant]
  25. IMODIUM A-D [Concomitant]
  26. TRAZODONE [Concomitant]
  27. FENTANYL [Concomitant]
  28. HYDROMORPHONE [Concomitant]
  29. MYCOPHENOLIC ACID [Concomitant]
  30. METOCLOPRAMIDE [Concomitant]
  31. TACROLIMUS [Concomitant]
  32. ONDANSETRON [Concomitant]
  33. PANTOPRAZOLE [Concomitant]
  34. VALACICLOVIR [Concomitant]
  35. AMBIEN [Concomitant]
  36. VALCYTE [Concomitant]
  37. VINCRISTINE + ADRIAMYCIN + DEXAMETHASONE [Concomitant]
  38. FLAGYL [Concomitant]
  39. DIFLUCAN [Concomitant]
  40. PENICILLIN V-K [Concomitant]
  41. NPH INSULIN [Concomitant]
  42. CYCLOSPORINE [Concomitant]
  43. COMPAZINE [Concomitant]
  44. VELCADE [Concomitant]
  45. REVLIMID [Concomitant]
  46. MS CONTIN [Concomitant]
  47. THALIDOMIDE [Concomitant]
  48. MECLIZINE [Concomitant]
  49. SENNA [Concomitant]
  50. Z-PAK [Concomitant]
  51. PERCOCET [Concomitant]
  52. HYDROCODONE [Concomitant]
  53. NEURONTIN [Concomitant]
  54. FLEXERIL [Concomitant]
  55. MEDROL [Concomitant]
  56. TRIAMCINOLONE [Concomitant]
  57. CLARITIN [Concomitant]
  58. PREVACID [Concomitant]
  59. COUMADIN ^BOOTS^ [Concomitant]
  60. MELPHALAN [Concomitant]
  61. ERGOCALCIFEROL [Concomitant]
  62. PROMETHAZINE [Concomitant]
  63. CEFAZOLIN [Concomitant]
  64. PROPOFOL [Concomitant]
  65. DESFLURANE [Concomitant]
  66. ROCURONIUM [Concomitant]
  67. LIDOCAINE [Concomitant]

REACTIONS (200)
  - Osteonecrosis of jaw [Unknown]
  - Osteoradionecrosis [Unknown]
  - Osteolysis [Unknown]
  - General physical health deterioration [Unknown]
  - Pain [Unknown]
  - Anxiety [Unknown]
  - Decreased interest [Unknown]
  - Pain in jaw [Unknown]
  - Bone disorder [Unknown]
  - Impaired healing [Unknown]
  - Candida infection [Unknown]
  - Pneumonia [Unknown]
  - Cytomegalovirus infection [Unknown]
  - Metastases to bone marrow [Unknown]
  - Graft versus host disease [Unknown]
  - Hypertension [Unknown]
  - Diabetes mellitus [Unknown]
  - Hyperlipidaemia [Unknown]
  - Gastrooesophageal reflux disease [Unknown]
  - Osteoporosis [Unknown]
  - Blood sodium decreased [Unknown]
  - Rash [Unknown]
  - Blood magnesium decreased [Unknown]
  - Fatigue [Unknown]
  - Neuropathy peripheral [Unknown]
  - Thrombosis [Unknown]
  - Impaired gastric emptying [Unknown]
  - Sleep apnoea syndrome [Unknown]
  - Extrasystoles [Unknown]
  - Renal failure acute [Unknown]
  - Hypoxia [Unknown]
  - Cardiomyopathy [Unknown]
  - Neoplasm malignant [Unknown]
  - Diarrhoea [Unknown]
  - Dehydration [Unknown]
  - Left ventricular hypertrophy [Unknown]
  - Left ventricular dysfunction [Unknown]
  - Ejection fraction [Unknown]
  - Inflammation [Unknown]
  - Foreign body reaction [Unknown]
  - Renal disorder [Unknown]
  - Pyrexia [Unknown]
  - Intervertebral disc degeneration [Unknown]
  - Bronchitis [Unknown]
  - Duodenitis [Unknown]
  - Gastric polyps [Unknown]
  - Gastritis [Unknown]
  - Dysphagia [Unknown]
  - Osteonecrosis [Unknown]
  - Odynophagia [Unknown]
  - Haematemesis [Unknown]
  - Dermatitis contact [Unknown]
  - Insomnia [Unknown]
  - Hyperhidrosis [Unknown]
  - Ocular hyperaemia [Unknown]
  - Oropharyngeal pain [Unknown]
  - Bursitis [Unknown]
  - Dysphonia [Unknown]
  - Dyspnoea [Unknown]
  - Chest pain [Unknown]
  - Tuberculosis [Unknown]
  - Dysuria [Unknown]
  - Nephrolithiasis [Unknown]
  - Pollakiuria [Unknown]
  - Limb discomfort [Unknown]
  - Eructation [Unknown]
  - Abdominal distension [Unknown]
  - Abdominal discomfort [Unknown]
  - Dyspepsia [Unknown]
  - Hypercalcaemia [Unknown]
  - Bone marrow disorder [Unknown]
  - Anaemia [Unknown]
  - Purulence [Unknown]
  - Swelling face [Unknown]
  - Granuloma [Unknown]
  - Localised infection [Unknown]
  - Hypophosphataemia [Unknown]
  - Hyperglycaemia [Unknown]
  - Diabetic ketoacidosis [Unknown]
  - Cardiac failure congestive [Unknown]
  - Cataract [Unknown]
  - Atelectasis [Unknown]
  - Deep vein thrombosis [Unknown]
  - Back pain [Unknown]
  - Gait disturbance [Unknown]
  - Decubitus ulcer [Unknown]
  - Bone neoplasm [Unknown]
  - Hiatus hernia [Unknown]
  - Haematochezia [Unknown]
  - Haematoma [Unknown]
  - Gastrointestinal haemorrhage [Unknown]
  - Septic shock [Unknown]
  - Pneumonia aspiration [Unknown]
  - Respiratory failure [Unknown]
  - Hypotension [Unknown]
  - Myocardial infarction [Unknown]
  - Cholelithiasis [Unknown]
  - Malaise [Unknown]
  - Chest discomfort [Unknown]
  - Vision blurred [Unknown]
  - Erectile dysfunction [Unknown]
  - Testicular pain [Unknown]
  - Facial pain [Unknown]
  - Stomatitis [Unknown]
  - Oral discomfort [Unknown]
  - Bone pain [Unknown]
  - Hypoaesthesia [Unknown]
  - Osteomyelitis [Unknown]
  - Sensory loss [Unknown]
  - Myalgia [Unknown]
  - Pulmonary embolism [Unknown]
  - Prostate cancer [Unknown]
  - Hand fracture [Unknown]
  - Tachycardia [Unknown]
  - Cellulitis [Unknown]
  - Bone cyst [Unknown]
  - Sepsis [Unknown]
  - Musculoskeletal pain [Unknown]
  - Bone lesion [Unknown]
  - Depression [Unknown]
  - Osteosclerosis [Unknown]
  - Device failure [Unknown]
  - Abscess soft tissue [Unknown]
  - Dental caries [Unknown]
  - Joint effusion [Unknown]
  - Mitral valve incompetence [Unknown]
  - Mitral valve sclerosis [Unknown]
  - Myocardial ischaemia [Unknown]
  - Urosepsis [Unknown]
  - Phlebitis [Unknown]
  - Lymphoma [Unknown]
  - Leukaemia [Unknown]
  - Groin pain [Unknown]
  - Umbilical hernia [Unknown]
  - Glaucoma [Unknown]
  - Nodule [Unknown]
  - Thrombocytopenia [Unknown]
  - Angina unstable [Unknown]
  - Oral mucosal blistering [Unknown]
  - Tooth fracture [Unknown]
  - Urinary tract infection [Unknown]
  - Diaphragmatic hernia [Unknown]
  - Tricuspid valve incompetence [Unknown]
  - Chondromalacia [Unknown]
  - Memory impairment [Unknown]
  - Lower extremity mass [Unknown]
  - Rotator cuff syndrome [Unknown]
  - Skin lesion [Unknown]
  - Periodontitis [Unknown]
  - Fall [Unknown]
  - Essential hypertension [Unknown]
  - Alveolar osteitis [Unknown]
  - Arthralgia [Unknown]
  - Excoriation [Unknown]
  - Joint swelling [Unknown]
  - Joint injury [Unknown]
  - Joint range of motion decreased [Unknown]
  - Agranulocytosis [Unknown]
  - Eye haemorrhage [Unknown]
  - Neutropenia [Unknown]
  - Peripheral vascular disorder [Unknown]
  - Vomiting [Unknown]
  - Embolism venous [Unknown]
  - Renal injury [Unknown]
  - Faecal incontinence [Unknown]
  - Restlessness [Unknown]
  - Confusional state [Unknown]
  - Road traffic accident [Unknown]
  - Neck mass [Unknown]
  - Local swelling [Unknown]
  - Dermal cyst [Unknown]
  - Soft tissue necrosis [Unknown]
  - Mouth haemorrhage [Unknown]
  - Myositis [Unknown]
  - Osteoarthritis [Unknown]
  - Contusion [Unknown]
  - Cyst [Unknown]
  - Lymphadenopathy [Unknown]
  - Acquired oesophageal web [Unknown]
  - Pulmonary oedema [Unknown]
  - Cardiac murmur [Unknown]
  - Tooth loss [Unknown]
  - Renal cyst [Unknown]
  - Pancreatic disorder [Unknown]
  - Hypercholesterolaemia [Unknown]
  - Paronychia [Unknown]
  - Metastases to bone [Unknown]
  - Orthopnoea [Unknown]
  - Vascular calcification [Unknown]
  - Cerebrovascular accident [Unknown]
  - Mallory-Weiss syndrome [Unknown]
  - Retinitis [Unknown]
  - Dysthymic disorder [Unknown]
  - Lung infiltration [Unknown]
  - Pulmonary valve incompetence [Unknown]
  - Tachypnoea [Unknown]
  - Hypoglycaemia [Unknown]
  - Myoclonus [Unknown]
  - Retinal oedema [Unknown]
  - Migraine [Unknown]
